FAERS Safety Report 5104868-5 (Version None)
Quarter: 2006Q3

REPORT INFORMATION
  Report Type: 
  Country: None (occurrence: None)
  Receive Date: 20060914
  Receipt Date: 20060905
  Transmission Date: 20061208
  Serious: Yes (Hospitalization)
  Sender: FDA-Public Use
  Company Number: FR-GLAXOSMITHKLINE-B0437990A

PATIENT
  Age: 26 Year
  Sex: Female

DRUGS (3)
  1. AUGMENTIN [Suspect]
     Dosage: 3G PER DAY
     Route: 048
     Dates: start: 20060717, end: 20060724
  2. AUGMENTIN '125' [Suspect]
     Dosage: 6G PER DAY
     Route: 042
     Dates: start: 20060713, end: 20060717
  3. ADALAT [Concomitant]
     Route: 065

REACTIONS (6)
  - ALANINE AMINOTRANSFERASE INCREASED [None]
  - ASPARTATE AMINOTRANSFERASE INCREASED [None]
  - CHOLESTASIS OF PREGNANCY [None]
  - DRUG EXPOSURE DURING PREGNANCY [None]
  - HEPATIC ENZYME INCREASED [None]
  - JAUNDICE [None]
